FAERS Safety Report 9422480 (Version 1)
Quarter: 2013Q3

REPORT INFORMATION
  Report Type: Spontaneous
  Country: IE (occurrence: IE)
  Receive Date: 20130726
  Receipt Date: 20130726
  Transmission Date: 20140515
  Serious: Yes (Other)
  Sender: FDA-Public Use
  Company Number: IE-ELI_LILLY_AND_COMPANY-IE201307006179

PATIENT
  Age: 53 Year
  Sex: Male

DRUGS (4)
  1. CIALIS [Suspect]
     Indication: ERECTILE DYSFUNCTION
     Dosage: 20 MG, SINGLE
     Route: 048
     Dates: start: 20130701, end: 20130701
  2. INNOHEP 10000 [Concomitant]
     Indication: DEEP VEIN THROMBOSIS POSTOPERATIVE
     Dosage: 1700 U, UNK
     Dates: start: 20121201
  3. INNOHEP 10000 [Concomitant]
     Indication: POST PROCEDURAL PULMONARY EMBOLISM
  4. DETRUSITOL [Concomitant]
     Dosage: UNK
     Dates: start: 20121201

REACTIONS (1)
  - Aphasia [Recovered/Resolved]
